FAERS Safety Report 6309144-0 (Version None)
Quarter: 2009Q3

REPORT INFORMATION
  Report Type: 
  Country: None (occurrence: None)
  Receive Date: 20090814
  Receipt Date: 20090429
  Transmission Date: 20100115
  Serious: No
  Sender: FDA-Public Use
  Company Number: A0781296A

PATIENT
  Age: 26 Year
  Sex: Female

DRUGS (9)
  1. COREG CR [Suspect]
     Indication: HYPERTENSION
     Dosage: 20MG PER DAY
     Route: 048
     Dates: start: 20090423, end: 20090426
  2. EXCEDRIN [Concomitant]
  3. LOW-OGESTREL-21 [Concomitant]
  4. FEOSOL [Concomitant]
  5. VITAMIN B-12 [Concomitant]
  6. PYRIDOXINE HCL [Concomitant]
  7. VIT E [Concomitant]
  8. CO Q10 [Concomitant]
  9. FISH OIL [Concomitant]

REACTIONS (9)
  - ASTHENIA [None]
  - DECREASED APPETITE [None]
  - FEELING ABNORMAL [None]
  - NAUSEA [None]
  - PAIN [None]
  - PRURITUS [None]
  - RASH [None]
  - SLUGGISHNESS [None]
  - VOMITING [None]
